FAERS Safety Report 7119119-X (Version None)
Quarter: 2010Q4

REPORT INFORMATION
  Report Type: 
  Country: None (occurrence: None)
  Receive Date: 20101123
  Receipt Date: 20101116
  Transmission Date: 20110411
  Serious: Yes (Hospitalization)
  Sender: FDA-Public Use
  Company Number: AU-ELI_LILLY_AND_COMPANY-AU201009007968

PATIENT
  Sex: Male
  Weight: 65.15 kg

DRUGS (11)
  1. PEMETREXED [Suspect]
     Indication: NON-SMALL CELL LUNG CANCER
     Dosage: 875 MG, OTHER
     Route: 042
     Dates: start: 20100907, end: 20100907
  2. PEMETREXED [Suspect]
     Dates: start: 20101005
  3. CISPLATIN [Suspect]
     Indication: NON-SMALL CELL LUNG CANCER
     Dosage: 130 MG, OTHER
     Route: 042
     Dates: start: 20100907, end: 20100907
  4. CISPLATIN [Suspect]
     Dates: start: 20101005
  5. ISOPTIN [Concomitant]
     Indication: HYPERTENSION
     Dates: start: 20000101
  6. TRITACE [Concomitant]
     Indication: HYPERTENSION
     Dates: start: 20000101
  7. ZOCOR [Concomitant]
     Indication: HYPERCHOLESTEROLAEMIA
     Dates: start: 20000101
  8. AROPAX [Concomitant]
     Indication: ANXIETY
     Dates: start: 20000101
  9. VITAMIN B-12 [Concomitant]
     Dates: start: 20100830, end: 20100830
  10. FOLIC ACID [Concomitant]
     Dates: start: 20100831
  11. ASPIRIN [Concomitant]
     Dosage: 100 MG, UNK

REACTIONS (1)
  - CEREBRAL INFARCTION [None]
